FAERS Safety Report 22959746 (Version 2)
Quarter: 2023Q4

REPORT INFORMATION
  Report Type: Report from Study
  Country: JP (occurrence: JP)
  Receive Date: 20230920
  Receipt Date: 20231006
  Transmission Date: 20240110
  Serious: Yes (Hospitalization, Other)
  Sender: FDA-Public Use
  Company Number: JP-JNJFOC-20230940172

PATIENT
  Age: 93 Year
  Sex: Male
  Weight: 40 kg

DRUGS (9)
  1. APALUTAMIDE [Suspect]
     Active Substance: APALUTAMIDE
     Indication: Hormone-refractory prostate cancer
     Route: 048
     Dates: start: 20221003, end: 20230907
  2. CLOPIDOGREL [Suspect]
     Active Substance: CLOPIDOGREL BISULFATE
     Indication: Cerebral infarction
     Route: 048
     Dates: start: 20221130, end: 20230830
  3. AMLODIPINE [Concomitant]
     Active Substance: AMLODIPINE BESYLATE
     Indication: Hypertension
     Route: 048
     Dates: end: 20230830
  4. VALSARTAN [Concomitant]
     Active Substance: VALSARTAN
     Indication: Hypertension
     Route: 048
     Dates: end: 20230830
  5. GOSERELIN ACETATE [Concomitant]
     Active Substance: GOSERELIN ACETATE
     Indication: Prostate cancer
     Route: 058
  6. CARBAZOCHROME SODIUM SULFONATE [Concomitant]
     Active Substance: CARBAZOCHROME SODIUM SULFONATE
     Indication: Subdural haematoma
     Dosage: DOSE UNKNOWN
     Route: 065
     Dates: start: 20230831
  7. TRANEXAMIC ACID [Concomitant]
     Active Substance: TRANEXAMIC ACID
     Indication: Subdural haematoma
     Dosage: DOSE UNKNOWN
     Route: 065
     Dates: start: 20230831
  8. GOREISAN [ALISMA PLANTAGO-AQUATICA SUBSP. ORIENTALE TUBER;ATRACTYLODES [Concomitant]
     Indication: Subdural haematoma
     Dosage: DOSE UNKNOWN
     Route: 065
     Dates: start: 20230831
  9. ELDECALCITOL [Concomitant]
     Active Substance: ELDECALCITOL
     Indication: Osteoporosis
     Route: 048

REACTIONS (6)
  - Subdural haematoma [Recovering/Resolving]
  - Cerebral infarction [Recovering/Resolving]
  - Fall [Unknown]
  - Gait disturbance [Unknown]
  - Dysphagia [Not Recovered/Not Resolved]
  - Prostatic specific antigen increased [Unknown]

NARRATIVE: CASE EVENT DATE: 20221115
